FAERS Safety Report 4742355-4 (Version None)
Quarter: 2005Q3

REPORT INFORMATION
  Report Type: 
  Country: None (occurrence: None)
  Receive Date: 20050808
  Receipt Date: 20050726
  Transmission Date: 20060218
  Serious: No
  Sender: FDA-Public Use
  Company Number: USA050393906

PATIENT
  Age: 55 Year
  Sex: Female
  Weight: 50 kg

DRUGS (7)
  1. CYMBALTA [Suspect]
     Indication: MAJOR DEPRESSION
     Dosage: 60 MG DAY
     Dates: start: 20050112, end: 20050201
  2. PERPHENAZINE [Concomitant]
  3. TYLENOL W/ CODEINE [Concomitant]
  4. PROVIGIL [Concomitant]
  5. SEROQUEL [Concomitant]
  6. DOXYCYCLINE [Concomitant]
  7. EFFEXOR [Concomitant]

REACTIONS (2)
  - HEPATIC ENZYME INCREASED [None]
  - INFLUENZA LIKE ILLNESS [None]
